FAERS Safety Report 16644419 (Version 1)
Quarter: 2019Q3

REPORT INFORMATION
  Report Type: Spontaneous
  Country: US (occurrence: US)
  Receive Date: 20190729
  Receipt Date: 20190729
  Transmission Date: 20191004
  Serious: Yes (Hospitalization)
  Sender: FDA-Public Use
  Company Number: US-ELITE LABORATORIES INC.-2019ELT00033

PATIENT
  Age: 51 Year
  Sex: Male

DRUGS (2)
  1. METHADONE HYDROCHLORIDE. [Suspect]
     Active Substance: METHADONE HYDROCHLORIDE
     Dosage: 90 MG, 1X/DAY
     Route: 048
  2. GRAPEFRUIT JUICE [Suspect]
     Active Substance: GRAPEFRUIT JUICE
     Indication: ROUTINE HEALTH MAINTENANCE
     Dosage: 500 ML, 1X/DAY
     Route: 048

REACTIONS (6)
  - Food interaction [Recovered/Resolved]
  - Unresponsive to stimuli [Recovered/Resolved]
  - Hypoventilation [Recovered/Resolved]
  - Toxicity to various agents [Recovered/Resolved]
  - Hypoxia [Recovered/Resolved]
  - Miosis [Recovered/Resolved]
